FAERS Safety Report 12241180 (Version 1)
Quarter: 2016Q2

REPORT INFORMATION
  Report Type: Spontaneous
  Country: PL (occurrence: None)
  Receive Date: 20160405
  Receipt Date: 20160405
  Transmission Date: 20160815
  Serious: Yes (Life-Threatening, Disabling)
  Sender: FDA-Public Use
  Company Number: None

PATIENT
  Age: 53 Year
  Sex: Female
  Weight: 70 kg

DRUGS (7)
  1. IMURAN [Concomitant]
     Active Substance: AZATHIOPRINE
  2. TRILEPTAL [Concomitant]
     Active Substance: OXCARBAZEPINE
  3. MESTINON [Concomitant]
     Active Substance: PYRIDOSTIGMINE BROMIDE
  4. NEURONTIN [Concomitant]
     Active Substance: GABAPENTIN
  5. EUTHYROX [Concomitant]
     Active Substance: LEVOTHYROXINE SODIUM
  6. GASEC [Concomitant]
  7. MULTIHANCE [Suspect]
     Active Substance: GADOBENATE DIMEGLUMINE
     Indication: NUCLEAR MAGNETIC RESONANCE IMAGING
     Dosage: INTO A VEIN
     Route: 042
     Dates: start: 20130802, end: 20130802

REACTIONS (3)
  - Contrast media reaction [None]
  - Deep vein thrombosis [None]
  - Injection site reaction [None]

NARRATIVE: CASE EVENT DATE: 20130802
